FAERS Safety Report 8896923 (Version 5)
Quarter: 2014Q4

REPORT INFORMATION
  Report Type: Spontaneous
  Country: US (occurrence: None)
  Receive Date: 20121105
  Receipt Date: 20141121
  Transmission Date: 20150529
  Serious: Yes (Death, Congenital Anomaly)
  Sender: FDA-Public Use
  Company Number: 2012US0359

PATIENT
  Sex: Male
  Weight: .54 kg

DRUGS (1)
  1. KINERET [Suspect]
     Active Substance: ANAKINRA
     Route: 064

REACTIONS (7)
  - Maternal drugs affecting foetus [None]
  - Oligohydramnios [None]
  - Bladder agenesis [None]
  - Foetal growth restriction [None]
  - Renal aplasia [None]
  - Foetal exposure during pregnancy [None]
  - Foetal death [None]

NARRATIVE: CASE EVENT DATE: 201212
